FAERS Safety Report 6824240-7 (Version None)
Quarter: 2010Q3

REPORT INFORMATION
  Report Type: 
  Country: None (occurrence: None)
  Receive Date: 20100708
  Receipt Date: 20061012
  Transmission Date: 20110219
  Serious: No
  Sender: FDA-Public Use
  Company Number: US-PFIZER INC-2006127023

PATIENT
  Sex: Female
  Weight: 117.93 kg

DRUGS (9)
  1. CHANTIX [Suspect]
     Indication: SMOKING CESSATION THERAPY
     Route: 048
     Dates: start: 20060901
  2. TRICOR [Concomitant]
  3. NORETHINDRONE [Concomitant]
  4. METOCLOPRAMIDE [Concomitant]
  5. MONTELUKAST [Concomitant]
  6. BISOPROLOL [Concomitant]
  7. ISOSORBIDE MONONITRATE [Concomitant]
  8. CRESTOR [Concomitant]
  9. TYLENOL [Concomitant]

REACTIONS (4)
  - DRY MOUTH [None]
  - GINGIVAL BLEEDING [None]
  - GINGIVAL PAIN [None]
  - SENSITIVITY OF TEETH [None]
